FAERS Safety Report 7861055-5 (Version None)
Quarter: 2011Q4

REPORT INFORMATION
  Report Type: 
  Country: None (occurrence: None)
  Receive Date: 20111027
  Receipt Date: 20111019
  Transmission Date: 20120403
  Serious: Yes (Life-Threatening)
  Sender: FDA-Public Use
  Company Number: GB-GLAXOSMITHKLINE-B0756468A

PATIENT
  Age: 52 Year
  Sex: Male
  Weight: 99 kg

DRUGS (2)
  1. MALARONE [Suspect]
     Route: 048
     Dates: start: 20110814
  2. DIPROBASE [Concomitant]
     Indication: PSORIASIS

REACTIONS (2)
  - INTERNATIONAL NORMALISED RATIO INCREASED [None]
  - ACUTE HEPATIC FAILURE [None]
